FAERS Safety Report 7250808-2 (Version None)
Quarter: 2011Q1

REPORT INFORMATION
  Report Type: 
  Country: None (occurrence: None)
  Receive Date: 20110128
  Receipt Date: 20110120
  Transmission Date: 20110831
  Serious: Yes (Other)
  Sender: FDA-Public Use
  Company Number: US-BRISTOL-MYERS SQUIBB COMPANY-15505399

PATIENT
  Sex: Male

DRUGS (3)
  1. DIGOXIN [Suspect]
     Route: 048
  2. WARFARIN SODIUM [Suspect]
     Route: 048
  3. ZEGERID [Suspect]
     Dosage: OTC
     Route: 048

REACTIONS (1)
  - WEIGHT DECREASED [None]
